FAERS Safety Report 8923879 (Version 1)
Quarter: 2012Q4

REPORT INFORMATION
  Report Type: Spontaneous
  Country: US (occurrence: None)
  Receive Date: 20121116
  Receipt Date: 20121116
  Transmission Date: 20130627
  Serious: Yes (Death, Other)
  Sender: FDA-Public Use
  Company Number: TPA2012A08869

PATIENT
  Age: 71 Year
  Sex: Male
  Weight: 85.73 kg

DRUGS (4)
  1. ACTOS (PIOGLITAZONE HYDROCHLORIDE) [Suspect]
     Indication: TYPE 2 DIABETES MELLITUS
     Dates: start: 20021213, end: 20031215
  2. JANUVIA (SITAGLIPTIN PHOSPHATE) [Concomitant]
  3. METFORMIN (METFORMIN) [Concomitant]
  4. GLUCOPHAGE (METFORMIN) [Concomitant]

REACTIONS (1)
  - Bladder cancer [None]
